FAERS Safety Report 6532552-X (Version None)
Quarter: 2010Q1

REPORT INFORMATION
  Report Type: 
  Country: None (occurrence: None)
  Receive Date: 20100104
  Receipt Date: 20091221
  Transmission Date: 20100710
  Serious: Yes (Hospitalization)
  Sender: FDA-Public Use
  Company Number: 2009021775

PATIENT
  Sex: Female

DRUGS (1)
  1. VIVAGLOBIN [Suspect]
     Indication: IMMUNODEFICIENCY COMMON VARIABLE
     Dosage: (8.5 G, 8.5 GRAMS WEEKLY SUBCUTANEOUS)
     Route: 058
     Dates: start: 20090201

REACTIONS (1)
  - PAIN IN EXTREMITY [None]
